FAERS Safety Report 5355998-4 (Version None)
Quarter: 2007Q2

REPORT INFORMATION
  Report Type: 
  Country: None (occurrence: None)
  Receive Date: 20070613
  Receipt Date: 20070601
  Transmission Date: 20071010
  Serious: Yes (Other)
  Sender: FDA-Public Use
  Company Number: CHWYE772101JUN07

PATIENT
  Age: 43 Year
  Sex: Female

DRUGS (5)
  1. EFFEXOR [Suspect]
     Indication: DEPRESSION
     Route: 048
     Dates: end: 20070101
  2. EFFEXOR [Interacting]
     Dosage: REDUCTION FROM 150 TO 75 MG
     Route: 048
     Dates: start: 20070101, end: 20070323
  3. PANTOZOL [Concomitant]
     Indication: GASTROOESOPHAGEAL REFLUX DISEASE
     Route: 048
  4. LEXOTANIL [Concomitant]
     Indication: DEPRESSION
     Route: 048
  5. SEROQUEL [Interacting]
     Indication: DEPRESSION
     Route: 048
     Dates: start: 20070301, end: 20070323

REACTIONS (6)
  - BLOOD BILIRUBIN INCREASED [None]
  - BLOOD CREATINE INCREASED [None]
  - BLOOD CREATINE PHOSPHOKINASE INCREASED [None]
  - DRUG INTERACTION [None]
  - MYALGIA [None]
  - MYOPATHY ENDOCRINE [None]
